FAERS Safety Report 9002904 (Version 2)
Quarter: 2013Q1

REPORT INFORMATION
  Report Type: Spontaneous
  Country: US (occurrence: US)
  Receive Date: 20130108
  Receipt Date: 20130111
  Transmission Date: 20140127
  Serious: Yes (Other)
  Sender: FDA-Public Use
  Company Number: US-PFIZER INC-2013007077

PATIENT
  Sex: Female

DRUGS (2)
  1. VIAGRA [Suspect]
     Indication: PULMONARY HYPERTENSION
     Dosage: 100 MG, 3X/DAY
  2. TRACLEER [Suspect]
     Indication: PULMONARY ARTERIAL HYPERTENSION
     Dosage: UNK

REACTIONS (3)
  - Cardiac disorder [Unknown]
  - Mycobacterium avium complex infection [Unknown]
  - Off label use [Unknown]
